FAERS Safety Report 25567744 (Version 1)
Quarter: 2025Q3

REPORT INFORMATION
  Report Type: Spontaneous
  Country: CA (occurrence: CA)
  Receive Date: 20250716
  Receipt Date: 20250716
  Transmission Date: 20251021
  Serious: Yes (Other)
  Sender: FRESENIUS KABI
  Company Number: CA-FreseniusKabi-FK202509496

PATIENT
  Age: 56 Year
  Sex: Female

DRUGS (14)
  1. PANTOPRAZOLE [Suspect]
     Active Substance: PANTOPRAZOLE
     Indication: Lichen planus
  2. PANTOPRAZOLE [Suspect]
     Active Substance: PANTOPRAZOLE
     Indication: Dyspareunia
  3. ATENOLOL [Suspect]
     Active Substance: ATENOLOL
     Indication: Lichen planus
  4. ATENOLOL [Suspect]
     Active Substance: ATENOLOL
     Indication: Dyspareunia
  5. CANDESARTAN [Suspect]
     Active Substance: CANDESARTAN
     Indication: Lichen planus
  6. CANDESARTAN [Suspect]
     Active Substance: CANDESARTAN
     Indication: Dyspareunia
  7. DICLOFENAC SODIUM\MISOPROSTOL [Suspect]
     Active Substance: DICLOFENAC SODIUM\MISOPROSTOL
     Indication: Lichen planus
  8. ESTROGENS [Suspect]
     Active Substance: ESTROGENS
     Indication: Lichen planus
  9. HYDROCHLOROTHIAZIDE [Suspect]
     Active Substance: HYDROCHLOROTHIAZIDE
     Indication: Lichen planus
  10. HYDROCHLOROTHIAZIDE [Suspect]
     Active Substance: HYDROCHLOROTHIAZIDE
     Indication: Dyspareunia
  11. MISOPROSTOL [Suspect]
     Active Substance: MISOPROSTOL
     Indication: Lichen planus
  12. MISOPROSTOL [Suspect]
     Active Substance: MISOPROSTOL
     Indication: Dyspareunia
  13. PERINDOPRIL [Suspect]
     Active Substance: PERINDOPRIL
     Indication: Lichen planus
  14. PERINDOPRIL [Suspect]
     Active Substance: PERINDOPRIL
     Indication: Dyspareunia

REACTIONS (2)
  - Lichen planus [Unknown]
  - Off label use [Unknown]
